FAERS Safety Report 10017413 (Version 1)
Quarter: 2014Q1

REPORT INFORMATION
  Report Type: Spontaneous
  Country: US (occurrence: US)
  Receive Date: 20140318
  Receipt Date: 20140318
  Transmission Date: 20141002
  Serious: No
  Sender: FDA-Public Use
  Company Number: US-PFIZER INC-2014076019

PATIENT
  Sex: 0

DRUGS (3)
  1. LYRICA [Suspect]
     Indication: SPINAL CORD INJURY
     Dosage: UNK
  2. LYRICA [Suspect]
     Indication: BACK INJURY
  3. LYRICA [Suspect]
     Indication: LIMB INJURY

REACTIONS (2)
  - Drug effect incomplete [Unknown]
  - Pain [Unknown]
